FAERS Safety Report 7113297-4 (Version None)
Quarter: 2010Q4

REPORT INFORMATION
  Report Type: 
  Country: None (occurrence: None)
  Receive Date: 20101119
  Receipt Date: 20100701
  Transmission Date: 20110411
  Serious: No
  Sender: FDA-Public Use
  Company Number: A0869535A

PATIENT
  Age: 39 Year
  Sex: Female

DRUGS (1)
  1. BUPROPION HCL [Suspect]
     Indication: DEPRESSION
     Dosage: 450MGD PER DAY
     Route: 048
     Dates: start: 20070101

REACTIONS (1)
  - OEDEMA PERIPHERAL [None]
